FAERS Safety Report 12133844 (Version 3)
Quarter: 2016Q2

REPORT INFORMATION
  Report Type: Report from Study
  Country: US (occurrence: US)
  Receive Date: 20160301
  Receipt Date: 20160404
  Transmission Date: 20160815
  Serious: Yes (Hospitalization, Other)
  Sender: FDA-Public Use
  Company Number: US-ALEXION PHARMACEUTICALS INC-A201601210

PATIENT
  Sex: Female

DRUGS (2)
  1. SOLIRIS [Suspect]
     Active Substance: ECULIZUMAB
     Dosage: 1200 MG, Q2W
     Route: 042
  2. SOLIRIS [Suspect]
     Active Substance: ECULIZUMAB
     Indication: HAEMOLYTIC URAEMIC SYNDROME
     Dosage: UNK
     Route: 042
     Dates: start: 2015

REACTIONS (16)
  - Ileus [Unknown]
  - Infection [Unknown]
  - Cholelithiasis [Unknown]
  - Meningitis [Unknown]
  - Catheter site pain [Unknown]
  - Splenic infarction [Unknown]
  - Spleen disorder [Unknown]
  - Intestinal ischaemia [Unknown]
  - Platelet count increased [Unknown]
  - Abdominal hernia [Unknown]
  - Splenic neoplasm malignancy unspecified [Unknown]
  - Renal impairment [Unknown]
  - Vascular calcification [Unknown]
  - Mastoiditis [Unknown]
  - Gastrointestinal wall thickening [Unknown]
  - Pneumonia streptococcal [Not Recovered/Not Resolved]

NARRATIVE: CASE EVENT DATE: 201601
